FAERS Safety Report 4691311-3 (Version None)
Quarter: 2005Q2

REPORT INFORMATION
  Report Type: 
  Country: None (occurrence: None)
  Receive Date: 20050610
  Receipt Date: 20050531
  Transmission Date: 20051028
  Serious: Yes (Other)
  Sender: FDA-Public Use
  Company Number: 2005083258

PATIENT
  Age: 77 Year
  Sex: Male
  Weight: 68.9467 kg

DRUGS (8)
  1. INSPRA [Suspect]
     Indication: HYPERALDOSTERONISM
     Dosage: 25 MG (25 MG, QD), ORAL
     Route: 048
     Dates: start: 20050525
  2. INSPRA [Suspect]
     Indication: HYPERTENSION
     Dosage: 25 MG (25 MG, QD), ORAL
     Route: 048
     Dates: start: 20050525
  3. ALDACTONE [Suspect]
     Indication: HYPERALDOSTERONISM
     Dosage: 25 MG (25 MG, QD),ORAL
     Route: 048
     Dates: start: 20050301, end: 20050501
  4. HYTRIN [Concomitant]
  5. PLENDIL [Concomitant]
  6. ATENOLOL [Concomitant]
  7. MICARDIS [Concomitant]
  8. CLONIDINE [Concomitant]

REACTIONS (4)
  - BLOOD PRESSURE INCREASED [None]
  - HYPONATRAEMIA [None]
  - MALAISE [None]
  - THERAPY NON-RESPONDER [None]
